FAERS Safety Report 9783945 (Version 2)
Quarter: 2014Q1

REPORT INFORMATION
  Report Type: Spontaneous
  Country: US (occurrence: US)
  Receive Date: 20131226
  Receipt Date: 20140218
  Transmission Date: 20141002
  Serious: Yes (Other)
  Sender: FDA-Public Use
  Company Number: US-TEVA-452848USA

PATIENT
  Age: 17 Year
  Sex: Female

DRUGS (2)
  1. PROVIGIL [Suspect]
     Route: 048
  2. CLOBAZAM [Suspect]
     Indication: CONVULSION

REACTIONS (1)
  - Stevens-Johnson syndrome [Unknown]
